FAERS Safety Report 8827605 (Version 3)
Quarter: 2013Q2

REPORT INFORMATION
  Report Type: Report from Study
  Country: CA (occurrence: CA)
  Receive Date: 20121005
  Receipt Date: 20130424
  Transmission Date: 20140414
  Serious: Yes (Hospitalization)
  Sender: FDA-Public Use
  Company Number: CA-TEVA-362650USA

PATIENT
  Age: 64 Year
  Sex: Female

DRUGS (1)
  1. TREANDA [Suspect]
     Indication: NON-HODGKIN^S LYMPHOMA
     Dosage: 120 MG/M2
     Route: 042
     Dates: start: 20110217

REACTIONS (1)
  - Pneumonitis [Recovered/Resolved with Sequelae]
